FAERS Safety Report 5461101-2 (Version None)
Quarter: 2007Q3

REPORT INFORMATION
  Report Type: 
  Country: None (occurrence: None)
  Receive Date: 20070918
  Receipt Date: 20070918
  Transmission Date: 20080115
  Serious: No
  Sender: FDA-Public Use
  Company Number: None

PATIENT
  Sex: Male

DRUGS (1)
  1. HUMIRA [Suspect]
     Indication: RHEUMATOID ARTHRITIS
     Dosage: 40MG EVERY OTHER WEEK SQ
     Route: 058
     Dates: start: 20070810, end: 20070910

REACTIONS (4)
  - ACCIDENTAL EXPOSURE [None]
  - DEVICE FAILURE [None]
  - DRUG DOSE OMISSION [None]
  - PHARMACEUTICAL PRODUCT COMPLAINT [None]
